FAERS Safety Report 25251501 (Version 2)
Quarter: 2025Q2

REPORT INFORMATION
  Report Type: Spontaneous
  Country: US (occurrence: US)
  Receive Date: 20250429
  Receipt Date: 20250508
  Transmission Date: 20250716
  Serious: Yes (Hospitalization)
  Sender: ALKERMES
  Company Number: US-ALKERMES INC.-ALK-2025-001090

PATIENT
  Age: 55 Year
  Sex: Male
  Weight: 122.45 kg

DRUGS (6)
  1. VIVITROL [Suspect]
     Active Substance: NALTREXONE
     Indication: Alcoholism
     Route: 030
     Dates: start: 202503
  2. VIVITROL [Suspect]
     Active Substance: NALTREXONE
     Route: 030
     Dates: start: 2021
  3. MORPHINE [Suspect]
     Active Substance: MORPHINE
     Indication: Hepatic pain
     Route: 065
     Dates: start: 202504
  4. MORPHINE [Suspect]
     Active Substance: MORPHINE
     Indication: Gastrointestinal pain
  5. LIBRIUM [Suspect]
     Active Substance: CHLORDIAZEPOXIDE HYDROCHLORIDE
     Indication: Product used for unknown indication
     Route: 065
     Dates: start: 202504
  6. DILAUDID [Suspect]
     Active Substance: HYDROMORPHONE HYDROCHLORIDE
     Indication: Product used for unknown indication
     Route: 065
     Dates: start: 202504

REACTIONS (21)
  - Hepatic pain [Unknown]
  - Haematochezia [Unknown]
  - Craniofacial fracture [Unknown]
  - Eye injury [Unknown]
  - Chest injury [Unknown]
  - Rotator cuff syndrome [Unknown]
  - Oxygen saturation decreased [Unknown]
  - Loss of consciousness [Unknown]
  - Gastrointestinal pain [Unknown]
  - Liver disorder [Unknown]
  - Overdose [Unknown]
  - Monoplegia [Unknown]
  - Skin irritation [Unknown]
  - Victim of crime [Unknown]
  - Fall [Unknown]
  - Feeling abnormal [Unknown]
  - Contraindicated product administered [Unknown]
  - Depressed mood [Unknown]
  - Inadequate analgesia [Unknown]
  - Depression [Unknown]
  - Alcohol use [Unknown]

NARRATIVE: CASE EVENT DATE: 20240401
